FAERS Safety Report 8050323-2 (Version None)
Quarter: 2012Q1

REPORT INFORMATION
  Report Type: 
  Country: None (occurrence: None)
  Receive Date: 20120117
  Receipt Date: 20120111
  Transmission Date: 20120608
  Serious: No
  Sender: FDA-Public Use
  Company Number: US-PFIZER INC-2012008976

PATIENT
  Sex: Female
  Weight: 68.027 kg

DRUGS (2)
  1. KLONOPIN [Concomitant]
     Dosage: UNK
  2. NEURONTIN [Suspect]
     Indication: FIBROMYALGIA
     Dosage: 1200MG, 3X/DAY
     Route: 048
     Dates: start: 20020101, end: 20070101

REACTIONS (3)
  - PAIN [None]
  - ARTHRALGIA [None]
  - PAIN IN EXTREMITY [None]
